FAERS Safety Report 25916844 (Version 1)
Quarter: 2025Q4

REPORT INFORMATION
  Report Type: Spontaneous
  Country: SD (occurrence: SD)
  Receive Date: 20251014
  Receipt Date: 20251014
  Transmission Date: 20260118
  Serious: Yes (Life-Threatening, Hospitalization, Other)
  Sender: PURACAP PHARMACEUTICAL LLC
  Company Number: SD-PURACAP-SD-2025EPCLIT01149

PATIENT
  Age: 28 Year
  Sex: Male

DRUGS (1)
  1. IBUPROFEN [Suspect]
     Active Substance: IBUPROFEN
     Indication: Arthralgia
     Route: 065

REACTIONS (8)
  - Cardiac aneurysm [Recovered/Resolved]
  - Acute myocardial infarction [Recovered/Resolved]
  - Deep vein thrombosis [Recovered/Resolved]
  - Behcet^s syndrome [Recovered/Resolved]
  - Symptom masked [Recovered/Resolved]
  - Abdominal discomfort [Recovered/Resolved]
  - Arterial occlusive disease [Recovered/Resolved]
  - Drug abuse [Unknown]
